FAERS Safety Report 5863128-5 (Version None)
Quarter: 2008Q3

REPORT INFORMATION
  Report Type: 
  Country: None (occurrence: None)
  Receive Date: 20080828
  Receipt Date: 20080821
  Transmission Date: 20090109
  Serious: Yes (Hospitalization, Other)
  Sender: FDA-Public Use
  Company Number: CH-WYE-G01814508

PATIENT
  Age: 60 Year
  Sex: Male

DRUGS (3)
  1. EFFEXOR [Suspect]
     Indication: DEPRESSION
     Route: 048
     Dates: start: 20061101, end: 20080305
  2. EFFEXOR [Suspect]
     Dates: start: 20080415, end: 20080422
  3. EFFEXOR [Suspect]
     Dates: start: 20080520, end: 20080618

REACTIONS (2)
  - BILE DUCT CANCER [None]
  - THROMBOCYTOPENIA [None]
